FAERS Safety Report 7310462-8 (Version None)
Quarter: 2011Q1

REPORT INFORMATION
  Report Type: 
  Country: None (occurrence: None)
  Receive Date: 20110224
  Receipt Date: 20100909
  Transmission Date: 20110831
  Serious: No
  Sender: FDA-Public Use
  Company Number: US-BRISTOL-MYERS SQUIBB COMPANY-15278674

PATIENT
  Age: 59 Year
  Sex: Male
  Weight: 109 kg

DRUGS (4)
  1. ATENOLOL [Concomitant]
     Indication: HYPERTENSION
     Route: 048
     Dates: start: 20030101
  2. MICRONASE [Suspect]
     Indication: TYPE 2 DIABETES MELLITUS
     Route: 048
     Dates: start: 20100719
  3. GLUCOPHAGE [Suspect]
     Indication: TYPE 2 DIABETES MELLITUS
     Dosage: FROM 19-JUL-2010 DOSE INCREASED TO 1000MG BID
     Route: 048
     Dates: start: 20100621, end: 20100718
  4. ACTOS [Suspect]
     Indication: TYPE 2 DIABETES MELLITUS
     Dosage: DOSE TO BE GIVEN AS QHS.
     Route: 048
     Dates: start: 20100621

REACTIONS (3)
  - THERAPEUTIC RESPONSE DELAYED [None]
  - HEADACHE [None]
  - BLOOD GLUCOSE INCREASED [None]
